FAERS Safety Report 5976248-1 (Version None)
Quarter: 2008Q4

REPORT INFORMATION
  Report Type: 
  Country: None (occurrence: None)
  Receive Date: 20081202
  Receipt Date: 20081124
  Transmission Date: 20090506
  Serious: Yes (Other)
  Sender: FDA-Public Use
  Company Number: AU-ROCHE-598998

PATIENT
  Sex: Female

DRUGS (2)
  1. VALIUM [Suspect]
     Indication: PAIN
     Dosage: OTHER INDICATION: SLEEP PROBLEMS
     Route: 065
     Dates: start: 20081120
  2. AMITRIPTYLINE HCL [Concomitant]

REACTIONS (3)
  - ANXIETY [None]
  - COLITIS ULCERATIVE [None]
  - SLEEP DISORDER [None]
